FAERS Safety Report 5509352-2 (Version None)
Quarter: 2007Q4

REPORT INFORMATION
  Report Type: 
  Country: None (occurrence: None)
  Receive Date: 20071106
  Receipt Date: 20071018
  Transmission Date: 20080405
  Serious: Yes (Death)
  Sender: FDA-Public Use
  Company Number: ALK_00428_2007

PATIENT
  Sex: Male

DRUGS (1)
  1. VIVITROL [Suspect]
     Dosage: (380 MG 1X/MONTH)

REACTIONS (2)
  - COMPLETED SUICIDE [None]
  - GUN SHOT WOUND [None]
